FAERS Safety Report 18322103 (Version 1)
Quarter: 2020Q3

REPORT INFORMATION
  Report Type: Spontaneous
  Country: CZ (occurrence: CZ)
  Receive Date: 20200928
  Receipt Date: 20200928
  Transmission Date: 20201103
  Serious: Yes (Death, Life-Threatening, Hospitalization, Other)
  Sender: FDA-Public Use
  Company Number: CZ-ACCORD-202744

PATIENT
  Age: 62 Year
  Sex: Female
  Weight: 94 kg

DRUGS (14)
  1. EUTHYROX [Concomitant]
     Active Substance: LEVOTHYROXINE SODIUM
     Dosage: 1/2?0?0
  2. CALTRATE [Concomitant]
     Active Substance: CALCIUM CARBONATE
     Dosage: (LOW?MEDIUM DIETARY CALCIUM INTAKE)
  3. METHOTREXATE. [Suspect]
     Active Substance: METHOTREXATE
     Indication: RHEUMATOID ARTHRITIS
     Route: 048
     Dates: start: 201006, end: 202007
  4. KINITO [Concomitant]
     Indication: ABDOMINAL DISTENSION
     Dosage: AS NEEDED
  5. TARDYFERON [Concomitant]
     Active Substance: FERROUS SULFATE
     Dosage: MON?WED?FRI (CONSTIPATION, SHE BOUGHT LIQUID IRON FROM A HEALER)
  6. PREDNISONE. [Suspect]
     Active Substance: PREDNISONE
     Indication: RHEUMATOID ARTHRITIS
     Dosage: DOSAGES OF CORTICOIDS WERE SUCCESSFULLY REDUCED, 2,5 MG...
     Route: 048
     Dates: start: 201006, end: 202007
  7. HELIDES [Concomitant]
     Dosage: 1?0?0
  8. VALSACOR [Concomitant]
     Active Substance: VALSARTAN
     Dosage: 1?0?0
  9. SARILUMAB [Suspect]
     Active Substance: SARILUMAB
     Indication: RHEUMATOID ARTHRITIS
     Route: 058
     Dates: start: 20200319, end: 20200723
  10. DEXOKET [Concomitant]
     Dosage: FOR NIGHT
  11. VIGANTOL [Concomitant]
     Dosage: 20 DROPS TWICE A WEEK
  12. B?KOMPLEX [Concomitant]
     Active Substance: CALCIUM PANTOTHENATE\NIACINAMIDE\PYRIDOXINE HYDROCHLORIDE\RIBOFLAVIN\THIAMINE HYDROCHLORIDE
     Dosage: 1?0?0
  13. DETRALEX [Concomitant]
     Active Substance: DIOSMIN\HESPERIDIN
     Dosage: 1?0?1
  14. VEROSPIRON [Concomitant]
     Active Substance: SPIRONOLACTONE
     Dosage: 1?0?0

REACTIONS (2)
  - Gastrointestinal necrosis [Fatal]
  - Procedural intestinal perforation [Fatal]

NARRATIVE: CASE EVENT DATE: 202007
